FAERS Safety Report 23968625 (Version 2)
Quarter: 2024Q2

REPORT INFORMATION
  Report Type: Spontaneous
  Country: US (occurrence: US)
  Receive Date: 20240612
  Receipt Date: 20240614
  Transmission Date: 20240716
  Serious: No
  Sender: FDA-Public Use
  Company Number: US-002147023-NVSC2024US121706

PATIENT
  Sex: Male
  Weight: 170 kg

DRUGS (2)
  1. EVEROLIMUS [Suspect]
     Active Substance: EVEROLIMUS
     Indication: Product used for unknown indication
     Dosage: UNK
     Route: 065
  2. LENVIMA [Suspect]
     Active Substance: LENVATINIB
     Indication: Product used for unknown indication
     Dosage: 18 MG, QD
     Route: 048

REACTIONS (4)
  - Blood pressure increased [Unknown]
  - Arthralgia [Unknown]
  - Dysphonia [Unknown]
  - Toothache [Unknown]
